FAERS Safety Report 5673920-8 (Version None)
Quarter: 2008Q2

REPORT INFORMATION
  Report Type: 
  Country: None (occurrence: None)
  Receive Date: 20080228
  Receipt Date: 20071127
  Transmission Date: 20081010
  Serious: Yes (Other)
  Sender: FDA-Public Use
  Company Number: US200711006073

PATIENT
  Age: 20 Year
  Sex: Male

DRUGS (1)
  1. SYMBYAX(OLANZAPINE AND FLUOXETINE HYDROCHLORIDE) CAPSULE, 3/25 MG [Suspect]
     Indication: BIPOLAR DISORDER
     Dosage: 1 D/F, DAILY (1/D)
     Dates: start: 20071115, end: 20071117

REACTIONS (1)
  - CONVULSION [None]
